FAERS Safety Report 4366594-X (Version None)
Quarter: 2004Q2

REPORT INFORMATION
  Report Type: 
  Country: None (occurrence: None)
  Receive Date: 20040524
  Receipt Date: 20040506
  Transmission Date: 20050107
  Serious: Yes (Hospitalization)
  Sender: FDA-Public Use
  Company Number: 8006296

PATIENT
  Age: 59 Year
  Sex: Male

DRUGS (5)
  1. KEPPRA [Suspect]
     Indication: EPILEPSY
     Dosage: 2.5 G PO
     Dates: start: 20020701
  2. NEURONTIN [Concomitant]
  3. ATACAND [Concomitant]
  4. ALLOPURINOL TAB [Concomitant]
  5. URBASON [Concomitant]

REACTIONS (9)
  - ANTINUCLEAR ANTIBODY POSITIVE [None]
  - AUTOIMMUNE DISORDER [None]
  - BLOOD CREATINE PHOSPHOKINASE INCREASED [None]
  - DIALYSIS [None]
  - DYSPNOEA [None]
  - INFLUENZA LIKE ILLNESS [None]
  - MYOGLOBINURIA [None]
  - MYOSITIS [None]
  - RENAL FAILURE [None]
